FAERS Safety Report 12091928 (Version 6)
Quarter: 2016Q2

REPORT INFORMATION
  Report Type: Spontaneous
  Country: US (occurrence: US)
  Receive Date: 20160219
  Receipt Date: 20160413
  Transmission Date: 20160815
  Serious: No
  Sender: FDA-Public Use
  Company Number: US-AMGEN-USASP2016018901

PATIENT
  Age: 62 Year
  Sex: Female
  Weight: 126.53 kg

DRUGS (1)
  1. ENBREL [Suspect]
     Active Substance: ETANERCEPT
     Indication: RHEUMATOID ARTHRITIS
     Dosage: 50 MG, QWK
     Route: 058
     Dates: start: 20150608

REACTIONS (4)
  - Feeling abnormal [Unknown]
  - Malaise [Unknown]
  - Bronchitis [Unknown]
  - Decreased immune responsiveness [Unknown]
